FAERS Safety Report 4519401-6 (Version None)
Quarter: 2004Q4

REPORT INFORMATION
  Report Type: 
  Country: None (occurrence: None)
  Receive Date: 20041206
  Receipt Date: 20041124
  Transmission Date: 20050328
  Serious: Yes (Hospitalization)
  Sender: FDA-Public Use
  Company Number: 2004098633

PATIENT
  Sex: Female

DRUGS (1)
  1. NEOSPORIN [Suspect]
     Indication: WOUND
     Dosage: 3-4 TIMES
     Dates: start: 19940101, end: 19940101

REACTIONS (3)
  - APPLICATION SITE VESICLES [None]
  - SKIN DESQUAMATION [None]
  - SKIN DISCOLOURATION [None]
